FAERS Safety Report 4668876-0 (Version None)
Quarter: 2005Q2

REPORT INFORMATION
  Report Type: 
  Country: None (occurrence: None)
  Receive Date: 20050523
  Receipt Date: 20050223
  Transmission Date: 20051028
  Serious: Yes (Death, Hospitalization)
  Sender: FDA-Public Use
  Company Number: US-MERCK-0502USA03490

PATIENT
  Age: 82 Year
  Sex: Female

DRUGS (6)
  1. VIOXX [Suspect]
     Indication: OSTEOARTHRITIS
     Route: 048
     Dates: start: 20010701, end: 20030221
  2. VIOXX [Suspect]
     Indication: BACK PAIN
     Route: 048
     Dates: start: 20010701, end: 20030221
  3. TYLENOL (CAPLET) [Concomitant]
     Route: 065
  4. EXELON [Concomitant]
     Route: 065
     Dates: start: 20010101
  5. EXELON [Concomitant]
     Route: 065
     Dates: start: 20010101
  6. DITROPAN XL [Concomitant]
     Route: 065

REACTIONS (12)
  - CARDIAC FAILURE CONGESTIVE [None]
  - DEATH [None]
  - DEMENTIA ALZHEIMER'S TYPE [None]
  - EMOTIONAL DISTRESS [None]
  - GRAND MAL CONVULSION [None]
  - LETHARGY [None]
  - MENTAL STATUS CHANGES [None]
  - PULMONARY OEDEMA [None]
  - SHIFT TO THE LEFT [None]
  - SINUS TACHYCARDIA [None]
  - UPPER LIMB FRACTURE [None]
  - WHITE BLOOD CELL COUNT INCREASED [None]
